FAERS Safety Report 8480084-4 (Version None)
Quarter: 2012Q2

REPORT INFORMATION
  Report Type: 
  Country: None (occurrence: None)
  Receive Date: 20120629
  Receipt Date: 20120619
  Transmission Date: 20120825
  Serious: Yes (Other)
  Sender: FDA-Public Use
  Company Number: US-ELI_LILLY_AND_COMPANY-US201206006863

PATIENT
  Sex: Female

DRUGS (15)
  1. PRAVACHOL [Concomitant]
  2. ALLOPURINOL [Concomitant]
  3. LASIX [Concomitant]
     Dosage: 80 MG, UNKNOWN
  4. KLONOPIN [Concomitant]
  5. GEODON [Concomitant]
  6. LISINOPRIL [Concomitant]
  7. PREVACID [Concomitant]
     Dosage: 30 MG, UNKNOWN
  8. THORAZINE [Concomitant]
  9. NEURONTIN [Concomitant]
     Dosage: 1200 MG, TID
  10. TOPAMAX [Concomitant]
  11. MIRALAX [Concomitant]
  12. FISH OIL [Concomitant]
  13. SYNTHROID [Concomitant]
  14. CYMBALTA [Suspect]
     Dosage: 120 MG, UNKNOWN
  15. LITHIUM CARBONATE [Concomitant]

REACTIONS (5)
  - HYPOAESTHESIA [None]
  - MENTAL DISORDER [None]
  - DYSPNOEA [None]
  - DYSARTHRIA [None]
  - ASTHENIA [None]
